FAERS Safety Report 9824028 (Version 2)
Quarter: 2014Q1

REPORT INFORMATION
  Report Type: Spontaneous
  Country: US (occurrence: US)
  Receive Date: 20140116
  Receipt Date: 20140116
  Transmission Date: 20141002
  Serious: Yes (Other)
  Sender: FDA-Public Use
  Company Number: US-GILEAD-2011-0040260

PATIENT
  Age: 22 Year
  Sex: Male

DRUGS (2)
  1. LETAIRIS [Suspect]
     Indication: PULMONARY HYPERTENSION
     Route: 048
     Dates: start: 20110513
  2. LETAIRIS [Suspect]
     Indication: HEART DISEASE CONGENITAL
     Route: 048
     Dates: end: 20110605

REACTIONS (2)
  - Cardiac failure [Not Recovered/Not Resolved]
  - Oedema [Not Recovered/Not Resolved]
